FAERS Safety Report 6968691-9 (Version None)
Quarter: 2010Q3

REPORT INFORMATION
  Report Type: 
  Country: None (occurrence: None)
  Receive Date: 20100907
  Receipt Date: 20100831
  Transmission Date: 20110219
  Serious: Yes (Other)
  Sender: FDA-Public Use
  Company Number: GB-TEVA-247221ISR

PATIENT
  Sex: Female

DRUGS (1)
  1. CARBOPLATIN [Suspect]
     Indication: METASTATIC CARCINOMA OF THE BLADDER

REACTIONS (2)
  - HYPOPHOSPHATAEMIA [None]
  - RENAL TUBULAR ACIDOSIS [None]
